FAERS Safety Report 9626493 (Version 1)
Quarter: 2013Q4

REPORT INFORMATION
  Report Type: Spontaneous
  Country: US (occurrence: None)
  Receive Date: 20131015
  Receipt Date: 20131015
  Transmission Date: 20140711
  Serious: Yes (Other)
  Sender: FDA-Public Use
  Company Number: None

PATIENT
  Age: 64 Year
  Sex: Male
  Weight: 90.72 kg

DRUGS (1)
  1. PREGABALIN [Suspect]
     Indication: NEUROPATHY PERIPHERAL
     Dosage: 1 CAPSULE TWICE DAILY
     Route: 048
     Dates: start: 20130925, end: 20131014

REACTIONS (3)
  - Agitation [None]
  - Pruritus generalised [None]
  - Family stress [None]
